FAERS Safety Report 7204054-9 (Version None)
Quarter: 2010Q4

REPORT INFORMATION
  Report Type: 
  Country: None (occurrence: None)
  Receive Date: 20101230
  Receipt Date: 20101221
  Transmission Date: 20110411
  Serious: Yes (Congenital Anomaly)
  Sender: FDA-Public Use
  Company Number: US-JNJFOC-20101208620

PATIENT

DRUGS (4)
  1. ACETAMINOPHEN [Suspect]
  2. ACETAMINOPHEN [Suspect]
     Indication: DRUG EXPOSURE DURING PREGNANCY
  3. PROPOXYPHENE [Suspect]
     Indication: DRUG EXPOSURE DURING PREGNANCY
  4. PHENOBARBITAL [Suspect]
     Indication: DRUG EXPOSURE DURING PREGNANCY

REACTIONS (4)
  - CLEFT UVULA [None]
  - FOOT DEFORMITY [None]
  - MICROGNATHIA [None]
  - NOSE DEFORMITY [None]
